FAERS Safety Report 10223822 (Version 1)
Quarter: 2014Q2

REPORT INFORMATION
  Report Type: Spontaneous
  Country: US (occurrence: US)
  Receive Date: 20140609
  Receipt Date: 20140609
  Transmission Date: 20141212
  Serious: Yes (Death, Hospitalization, Other)
  Sender: FDA-Public Use
  Company Number: US-JNJFOC-20140603421

PATIENT
  Age: 15 Year
  Sex: Male

DRUGS (4)
  1. TYLENOL [Suspect]
     Indication: PAIN MANAGEMENT
     Dosage: EVERY 3 HOURS
     Route: 065
  2. TYLENOL [Suspect]
     Indication: HEADACHE
     Dosage: EVERY 3 HOURS
     Route: 065
  3. FIORICET [Suspect]
     Indication: PAIN MANAGEMENT
     Dosage: EVERY 3 HOURS
     Route: 065
  4. FIORICET [Suspect]
     Indication: HEADACHE
     Dosage: EVERY 3 HOURS
     Route: 065

REACTIONS (4)
  - Brain oedema [Fatal]
  - Brain herniation [Fatal]
  - Status epilepticus [Unknown]
  - Hyperammonaemic encephalopathy [Unknown]
